FAERS Safety Report 11092538 (Version 1)
Quarter: 2015Q2

REPORT INFORMATION
  Report Type: Report from Study
  Country: US (occurrence: US)
  Receive Date: 20150506
  Receipt Date: 20150506
  Transmission Date: 20150821
  Serious: Yes (Hospitalization)
  Sender: FDA-Public Use
  Company Number: US-BIOGENIDEC-2015BI058113

PATIENT
  Age: 58 Year
  Sex: Male

DRUGS (21)
  1. AMIODARONE [Concomitant]
     Active Substance: AMIODARONE
  2. GABAPENTIN. [Concomitant]
     Active Substance: GABAPENTIN
  3. LORAZEPAM. [Concomitant]
     Active Substance: LORAZEPAM
  4. CIPROFLOXACIN. [Concomitant]
     Active Substance: CIPROFLOXACIN
  5. ONDANSETRON [Concomitant]
     Active Substance: ONDANSETRON
  6. HYDRALAZINE [Concomitant]
     Active Substance: HYDRALAZINE HYDROCHLORIDE
  7. AMLODIPINE BESYLATE. [Concomitant]
     Active Substance: AMLODIPINE BESYLATE
  8. TAMSULOSIN [Concomitant]
     Active Substance: TAMSULOSIN
  9. LEVOFLOXACIN. [Concomitant]
     Active Substance: LEVOFLOXACIN
  10. LACTULOSE. [Concomitant]
     Active Substance: LACTULOSE
  11. FENTANYL. [Concomitant]
     Active Substance: FENTANYL
  12. MECLIZINE [Concomitant]
     Active Substance: MECLIZINE\MECLIZINE HYDROCHLORIDE
  13. ESCITALOPRAM [Concomitant]
     Active Substance: ESCITALOPRAM OXALATE
  14. DOC Q LACE [Concomitant]
     Active Substance: DOCUSATE SODIUM
  15. DEXILANT [Concomitant]
     Active Substance: DEXLANSOPRAZOLE
  16. LISINOPRIL. [Concomitant]
     Active Substance: LISINOPRIL
  17. FUROSEMIDE. [Concomitant]
     Active Substance: FUROSEMIDE
  18. TECFIDERA [Suspect]
     Active Substance: DIMETHYL FUMARATE
     Indication: MULTIPLE SCLEROSIS
     Route: 048
     Dates: start: 20131002
  19. FLUTICASONE [Concomitant]
     Active Substance: FLUTICASONE\FLUTICASONE PROPIONATE
  20. LORAZEPAM. [Concomitant]
     Active Substance: LORAZEPAM
  21. MORPHINE SULFATE IMM REL [Concomitant]

REACTIONS (1)
  - Fall [Recovered/Resolved]

NARRATIVE: CASE EVENT DATE: 201410
